FAERS Safety Report 23740300 (Version 1)
Quarter: 2024Q2

REPORT INFORMATION
  Report Type: Spontaneous
  Country: US (occurrence: US)
  Receive Date: 20240414
  Receipt Date: 20240414
  Transmission Date: 20240716
  Serious: No
  Sender: FDA-Public Use
  Company Number: US-BAUSCHBL-2024BNL004295

PATIENT
  Age: 58 Year
  Sex: Female

DRUGS (2)
  1. BACITRACIN ZINC AND POLYMYXIN B SULFATE [Suspect]
     Active Substance: BACITRACIN ZINC\POLYMYXIN B SULFATE
     Indication: Hordeolum
     Route: 047
     Dates: start: 20240402, end: 20240403
  2. AZITHROMYCIN [Concomitant]
     Active Substance: AZITHROMYCIN
     Indication: Product used for unknown indication
     Route: 065

REACTIONS (5)
  - Ocular hyperaemia [Recovering/Resolving]
  - Lacrimation increased [Recovering/Resolving]
  - Eye pruritus [Recovering/Resolving]
  - Swelling of eyelid [Recovering/Resolving]
  - Condition aggravated [Recovering/Resolving]

NARRATIVE: CASE EVENT DATE: 20240401
